FAERS Safety Report 24263654 (Version 3)
Quarter: 2024Q4

REPORT INFORMATION
  Report Type: Spontaneous
  Country: US (occurrence: US)
  Receive Date: 20240829
  Receipt Date: 20241009
  Transmission Date: 20250115
  Serious: Yes (Other)
  Sender: CHEPLAPHARM
  Company Number: US-ROCHE-10000058098

PATIENT
  Age: 37 Year
  Sex: Female

DRUGS (3)
  1. CLONAZEPAM [Suspect]
     Active Substance: CLONAZEPAM
     Indication: Product used for unknown indication
  2. RITUXAN [Suspect]
     Active Substance: RITUXIMAB
     Indication: Iatrogenic injury
     Route: 042
  3. RITUXAN [Suspect]
     Active Substance: RITUXIMAB
     Indication: Dermatomyositis
     Route: 042

REACTIONS (11)
  - Dermatomyositis [Unknown]
  - Myalgia [Unknown]
  - Arthralgia [Unknown]
  - Fatigue [Unknown]
  - Vitamin D deficiency [Unknown]
  - Anaemia [Unknown]
  - Rash [Unknown]
  - Arthralgia [Unknown]
  - Rash macular [Unknown]
  - Rash erythematous [Unknown]
  - Photosensitivity reaction [Unknown]
